FAERS Safety Report 24941238 (Version 1)
Quarter: 2025Q1

REPORT INFORMATION
  Report Type: Spontaneous
  Country: AU (occurrence: AU)
  Receive Date: 20250207
  Receipt Date: 20250207
  Transmission Date: 20250408
  Serious: Yes (Hospitalization, Other)
  Sender: RANBAXY
  Company Number: AU-SUN PHARMACEUTICAL INDUSTRIES LTD-2025R1-492325

PATIENT
  Age: 26 Year
  Sex: Male

DRUGS (1)
  1. VECURONIUM [Suspect]
     Active Substance: VECURONIUM BROMIDE
     Indication: Product used for unknown indication
     Route: 042
     Dates: start: 20240830

REACTIONS (2)
  - Anaphylactic reaction [Recovering/Resolving]
  - Haemodynamic instability [Recovering/Resolving]

NARRATIVE: CASE EVENT DATE: 20240830
